FAERS Safety Report 6809738-X (Version None)
Quarter: 2010Q2

REPORT INFORMATION
  Report Type: 
  Country: None (occurrence: None)
  Receive Date: 20100630
  Receipt Date: 20100621
  Transmission Date: 20101027
  Serious: Yes (Hospitalization)
  Sender: FDA-Public Use
  Company Number: US-ASTRAZENECA-2010SE28837

PATIENT
  Age: 46 Year
  Sex: Female
  Weight: 99.3 kg

DRUGS (1)
  1. NEXIUM [Suspect]
     Route: 048
     Dates: start: 20080101, end: 20100607

REACTIONS (3)
  - DRUG DOSE OMISSION [None]
  - HIATUS HERNIA [None]
  - ILL-DEFINED DISORDER [None]
